FAERS Safety Report 9845420 (Version 1)
Quarter: 2013Q4

REPORT INFORMATION
  Report Type: Spontaneous
  Country: US (occurrence: None)
  Receive Date: 20131219
  Receipt Date: 20131219
  Transmission Date: 20140711
  Serious: Yes (Hospitalization)
  Sender: FDA-Public Use
  Company Number: 163-21880-13010452

PATIENT
  Age: 45 Year
  Sex: Female

DRUGS (2)
  1. REVLIMID (LENALIDOMIDE) (15 MILLIGRAM, CAPSULES) [Suspect]
     Indication: PLASMA CELL MYELOMA
     Dosage: 15 MG, 21 IN 28 D, PO
     Route: 048
     Dates: start: 20111215
  2. THALOMID [Suspect]
     Indication: PLASMA CELL MYELOMA
     Route: 048
     Dates: start: 20120227

REACTIONS (5)
  - Nasopharyngitis [None]
  - Ear infection [None]
  - Sinusitis [None]
  - Pyrexia [None]
  - Immunoglobulins decreased [None]
